FAERS Safety Report 4317417-6 (Version None)
Quarter: 2004Q1

REPORT INFORMATION
  Report Type: 
  Country: None (occurrence: None)
  Receive Date: 20040312
  Receipt Date: 20040301
  Transmission Date: 20041129
  Serious: Yes (Hospitalization)
  Sender: FDA-Public Use
  Company Number: GB-JNJFOC-20040300286

PATIENT
  Age: 54 Year
  Sex: Female

DRUGS (10)
  1. REMICADE [Suspect]
     Indication: RHEUMATOID ARTHRITIS
     Dosage: INTRAVENOUS
     Route: 042
     Dates: start: 20020705
  2. SULFASALAZINE [Concomitant]
  3. PANTOPRAZOLE (PANTOPRAZOLE) [Concomitant]
  4. AMITRIPTYLINE HCL [Concomitant]
  5. CO-CODAMOL (PANADEINE CO) [Concomitant]
  6. HRT (ANDROGENS AND FEMALE SEX HORMONES IN COMB) [Concomitant]
  7. MELOXICAM (MELOXICAM) [Concomitant]
  8. PIRITON (CHLORPHENAMINE MALEATE) [Concomitant]
  9. HYPROMELLOSE (HYPROMELLOSE) [Concomitant]
  10. GLANDOSANE (GLANDOSANE) [Concomitant]

REACTIONS (1)
  - FOOT FRACTURE [None]
